FAERS Safety Report 26011821 (Version 2)
Quarter: 2025Q4

REPORT INFORMATION
  Report Type: Spontaneous
  Country: SA (occurrence: SA)
  Receive Date: 20251107
  Receipt Date: 20251107
  Transmission Date: 20260118
  Serious: Yes (Life-Threatening, Hospitalization, Congenital Anomaly, Other)
  Sender: SANDOZ
  Company Number: SA-MLMSERVICE-20180703-1254956-1

PATIENT
  Age: 38 Week
  Sex: Male

DRUGS (11)
  1. CELLCEPT [Suspect]
     Active Substance: MYCOPHENOLATE MOFETIL
     Indication: Immunosuppressant drug therapy
     Dosage: 20TH WEEK OF PREGNANCY OF MOTHER
     Route: 064
     Dates: end: 20060918
  2. CELLCEPT [Suspect]
     Active Substance: MYCOPHENOLATE MOFETIL
     Indication: Foetal exposure during pregnancy
     Dosage: UNK
     Route: 064
     Dates: end: 200609
  3. LAMIVUDINE [Suspect]
     Active Substance: LAMIVUDINE
     Indication: Foetal exposure during pregnancy
     Dosage: UNK
     Route: 064
  4. LAMIVUDINE [Suspect]
     Active Substance: LAMIVUDINE
     Indication: Immunosuppressant drug therapy
  5. PREDNISOLONE [Suspect]
     Active Substance: PREDNISOLONE
     Indication: Foetal exposure during pregnancy
     Dosage: UNK
     Route: 064
  6. PREDNISOLONE [Suspect]
     Active Substance: PREDNISOLONE
     Indication: Immunosuppressant drug therapy
  7. TACROLIMUS [Suspect]
     Active Substance: TACROLIMUS
     Indication: Foetal exposure during pregnancy
     Dosage: UNK
     Route: 064
  8. TACROLIMUS [Suspect]
     Active Substance: TACROLIMUS
     Indication: Immunosuppressant drug therapy
  9. LAMIVUDINE [Concomitant]
     Active Substance: LAMIVUDINE
     Indication: Immunosuppressant drug therapy
     Route: 064
  10. PREDNISOLONE [Concomitant]
     Active Substance: PREDNISOLONE
     Indication: Immunosuppressant drug therapy
     Route: 064
  11. TACROLIMUS [Concomitant]
     Active Substance: TACROLIMUS
     Indication: Immunosuppressant drug therapy
     Route: 064

REACTIONS (4)
  - Tracheo-oesophageal fistula [Recovered/Resolved]
  - Oesophageal atresia [Unknown]
  - Microtia [Unknown]
  - Foetal exposure during pregnancy [Unknown]
